FAERS Safety Report 18086694 (Version 1)
Quarter: 2020Q3

REPORT INFORMATION
  Report Type: Spontaneous
  Country: SE (occurrence: SE)
  Receive Date: 20200729
  Receipt Date: 20200729
  Transmission Date: 20201103
  Serious: Yes (Hospitalization)
  Sender: FDA-Public Use
  Company Number: SE-IPSEN BIOPHARMACEUTICALS, INC.-2020-13346

PATIENT
  Age: 76 Year
  Sex: Male

DRUGS (1)
  1. SOMATULINE [Suspect]
     Active Substance: LANREOTIDE ACETATE
     Indication: PRODUCT USED FOR UNKNOWN INDICATION
     Dosage: DOSE AND FREQUENCY NOT REPORTED
     Route: 065

REACTIONS (2)
  - Pain [Unknown]
  - Volvulus [Unknown]
